FAERS Safety Report 5386102-4 (Version None)
Quarter: 2007Q3

REPORT INFORMATION
  Report Type: 
  Country: None (occurrence: None)
  Receive Date: 20070710
  Receipt Date: 20070702
  Transmission Date: 20080115
  Serious: Yes (Death, Hospitalization)
  Sender: FDA-Public Use
  Company Number: 144-C5013-07040424

PATIENT
  Age: 75 Year
  Sex: Female

DRUGS (7)
  1. CC-5013 (LENALIDOMIDE) (CAPSULES) [Suspect]
     Indication: MULTIPLE MYELOMA
     Dosage: 25 MG, DAILY, ORAL
     Route: 048
     Dates: start: 20070331, end: 20070408
  2. DEXAMETHASONE TAB [Suspect]
     Indication: MULTIPLE MYELOMA
  3. ASPIRIN [Concomitant]
  4. PROPRANOLOL [Concomitant]
  5. FENTANYL (FENTANYL) (POULTICE OR PATCH) [Concomitant]
  6. OMEPRAZOLE [Concomitant]
  7. RECOMBINANT ERYTHROPOIETIN (ERYTHROPOIETIN) [Concomitant]

REACTIONS (5)
  - DISEASE PROGRESSION [None]
  - MULTI-ORGAN FAILURE [None]
  - MULTIPLE MYELOMA [None]
  - RENAL FAILURE ACUTE [None]
  - SEPTIC SHOCK [None]
